FAERS Safety Report 16874367 (Version 1)
Quarter: 2019Q4

REPORT INFORMATION
  Report Type: Spontaneous
  Country: US (occurrence: US)
  Receive Date: 20191001
  Receipt Date: 20191001
  Transmission Date: 20200122
  Serious: No
  Sender: FDA-Public Use
  Company Number: US-ASTRAZENECA-2019SF34703

PATIENT
  Sex: Female
  Weight: 86.2 kg

DRUGS (2)
  1. SEROQUEL [Suspect]
     Active Substance: QUETIAPINE FUMARATE
     Indication: SLEEP DISORDER
     Dosage: SEROQUEL BRAND 25 TO 100 MG DAILY
     Route: 048
  2. OMEPRAZOLE. [Suspect]
     Active Substance: OMEPRAZOLE
     Indication: GASTROOESOPHAGEAL REFLUX DISEASE
     Dosage: (GENERIC) 2 OF 20 MG DAILY AND 1 CAPSULE AT NIGHT
     Route: 048

REACTIONS (2)
  - Insomnia [Unknown]
  - Abdominal hernia [Unknown]
